FAERS Safety Report 10047653 (Version 3)
Quarter: 2014Q2

REPORT INFORMATION
  Report Type: Spontaneous
  Country: IT (occurrence: IT)
  Receive Date: 20140331
  Receipt Date: 20140507
  Transmission Date: 20141212
  Serious: Yes (Hospitalization, Other)
  Sender: FDA-Public Use
  Company Number: IT-PFIZER INC-2014088189

PATIENT
  Age: 66 Year
  Sex: Male

DRUGS (3)
  1. IRINOTECAN HCL [Suspect]
     Indication: RECTAL CANCER STAGE IV
     Dosage: 120 MG/M2, DAY 1,15
     Route: 042
     Dates: start: 20130902, end: 20140303
  2. OXALIPLATIN [Suspect]
     Indication: RECTAL CANCER STAGE IV
     Dosage: 70 MG/M2, DAY 8, 22 Q28
     Route: 042
     Dates: start: 20130902, end: 20140303
  3. ERBITUX [Suspect]
     Indication: RECTAL CANCER STAGE IV
     Dosage: 250 MG/M2, WEEKLY
     Route: 042
     Dates: start: 20130902, end: 20140324

REACTIONS (9)
  - Atrial fibrillation [Recovered/Resolved]
  - Atrial fibrillation [Recovered/Resolved]
  - Blood pressure increased [Recovered/Resolved]
  - Palpitations [Recovered/Resolved]
  - Chills [Recovered/Resolved]
  - Pyrexia [Recovered/Resolved]
  - Chills [Recovered/Resolved]
  - Blood pressure increased [Recovered/Resolved]
  - Pyrexia [Recovered/Resolved]
